FAERS Safety Report 7627918-0 (Version None)
Quarter: 2011Q3

REPORT INFORMATION
  Report Type: 
  Country: None (occurrence: None)
  Receive Date: 20110721
  Receipt Date: 20110708
  Transmission Date: 20111222
  Serious: Yes (Hospitalization)
  Sender: FDA-Public Use
  Company Number: KR-AMGEN-KORSP2011035724

PATIENT
  Age: 70 Year
  Sex: Female

DRUGS (15)
  1. UNKNOWNDRUG [Concomitant]
     Dosage: UNCERTAINTY
     Route: 065
  2. CINACALCET HYDROCHLORIDE [Suspect]
     Indication: SECONDARY HYPERTHYROIDISM
     Dosage: 25 MG, UNK
     Route: 048
     Dates: start: 20110107, end: 20110303
  3. UNKNOWNDRUG [Concomitant]
     Dosage: UNCERTAINTY
     Route: 065
  4. NIZATIDINE [Concomitant]
     Dosage: UNCERTAINTY
     Route: 065
  5. UNKNOWNDRUG [Concomitant]
     Dosage: UNCERTAINTY
     Route: 065
  6. CELECOXIB [Concomitant]
     Dosage: UNCERTAINTY
     Route: 065
  7. UNKNOWNDRUG [Concomitant]
     Dosage: UNCERTAINTY
     Route: 065
  8. BENEXATE HYDROCHLORIDE BETADEX [Concomitant]
     Dosage: UNCERTAINTY
     Route: 065
  9. ACETAMINOPHEN [Concomitant]
     Dosage: UNCERTAINTY
     Route: 065
  10. FAMOTIDINE [Concomitant]
     Dosage: UNCERTAINTY
     Route: 065
  11. CARVEDILOL [Concomitant]
     Dosage: UNCERTAINTY
     Route: 065
  12. ITOPRIDE HYDROCHLORIDE [Concomitant]
     Dosage: UNCERTAINTY
     Route: 065
  13. CALCITRIOL [Concomitant]
     Dosage: UNCERTAINTY
     Route: 065
  14. EPOGEN [Concomitant]
  15. INDOBUFEN [Concomitant]

REACTIONS (1)
  - HAEMOGLOBIN DECREASED [None]
